FAERS Safety Report 5601141-3 (Version None)
Quarter: 2008Q1

REPORT INFORMATION
  Report Type: 
  Country: None (occurrence: None)
  Receive Date: 20080124
  Receipt Date: 20080116
  Transmission Date: 20080703
  Serious: Yes (Other)
  Sender: FDA-Public Use
  Company Number: GB-WYE-G00898908

PATIENT
  Age: 18 Year
  Sex: Female

DRUGS (4)
  1. VENLAFAXINE HYDROCHLORIDE [Suspect]
     Dosage: OVERDOSED ON FOUR TABLETS
     Dates: start: 20021227, end: 20021227
  2. ZOPICLONE [Suspect]
     Dosage: AS REQUIRED
  3. SEROXAT [Suspect]
     Indication: ANXIETY
     Dosage: 10MG GRADUALLY WEANED DOWN TO 2.5MG
     Dates: start: 20020723, end: 20020903
  4. SEROXAT [Suspect]
     Indication: DEPRESSION
     Dosage: UNKNOWN
     Dates: start: 20021008, end: 20021018

REACTIONS (12)
  - AGGRESSION [None]
  - ANXIETY [None]
  - CONDITION AGGRAVATED [None]
  - DEPRESSED MOOD [None]
  - EARLY MORNING AWAKENING [None]
  - INTENTIONAL OVERDOSE [None]
  - PANIC ATTACK [None]
  - SELF-INJURIOUS IDEATION [None]
  - SOCIAL AVOIDANT BEHAVIOUR [None]
  - SUICIDAL IDEATION [None]
  - SUICIDE ATTEMPT [None]
  - TEARFULNESS [None]
